FAERS Safety Report 8840723 (Version 1)
Quarter: 2012Q4

REPORT INFORMATION
  Report Type: Report from Study
  Country: US (occurrence: US)
  Receive Date: 20121015
  Receipt Date: 20121015
  Transmission Date: 20130627
  Serious: Yes (Death)
  Sender: FDA-Public Use
  Company Number: US-PFIZER INC-2012250477

PATIENT
  Age: 16 Month

DRUGS (2)
  1. PROPANOLOL HCL [Suspect]
     Indication: PHACES SYNDROME
     Dosage: 1.0 mg/kg/day divided tid
     Route: 048
  2. PREDNISOLONE [Concomitant]

REACTIONS (3)
  - Peripheral vascular disorder [Fatal]
  - Infarction [Fatal]
  - Sleep disorder [Fatal]
